FAERS Safety Report 5035811-5 (Version None)
Quarter: 2006Q2

REPORT INFORMATION
  Report Type: 
  Country: None (occurrence: None)
  Receive Date: 20060526
  Receipt Date: 20060314
  Transmission Date: 20061013
  Serious: No
  Sender: FDA-Public Use
  Company Number: FABR-11314

PATIENT
  Age: 42 Year
  Sex: Female
  Weight: 119 kg

DRUGS (15)
  1. FABRAZYME [Suspect]
     Indication: FABRY'S DISEASE
     Dosage: 60 MG QWK IV
     Route: 042
     Dates: start: 20051028
  2. IBUPROFEN [Concomitant]
  3. ALLEGRA [Concomitant]
  4. LISINOPRIL [Concomitant]
  5. HYDROCHLOROTHIAZIDE [Concomitant]
  6. ASPIRIN [Concomitant]
  7. ULTRAM [Concomitant]
  8. MULTIPLE VITAMIN [Concomitant]
  9. TRAZODONE HCL [Concomitant]
  10. CYMBALTA [Concomitant]
  11. ANUSOL HC [Concomitant]
  12. ZETIA [Concomitant]
  13. MIDRIN [Concomitant]
  14. BACTROBAN 2% [Concomitant]
  15. PHENERGAN HCL [Concomitant]

REACTIONS (4)
  - BODY TEMPERATURE INCREASED [None]
  - CHILLS [None]
  - NAUSEA [None]
  - VOMITING [None]
